FAERS Safety Report 6782802-X (Version None)
Quarter: 2010Q2

REPORT INFORMATION
  Report Type: 
  Country: None (occurrence: None)
  Receive Date: 20100616
  Receipt Date: 20100527
  Transmission Date: 20101027
  Serious: Yes (Death)
  Sender: FDA-Public Use
  Company Number: 20100231

PATIENT
  Age: 37 Year
  Sex: Male

DRUGS (2)
  1. VENOFER [Suspect]
     Indication: IRON DEFICIENCY ANAEMIA
     Dosage: 5 ML/250 NS DILUT/100 MIN INTRAVENOUS DRIP
     Route: 041
     Dates: start: 20100501, end: 20100501
  2. COXIB 4 (RIFAMPICIN, ISONIAZID, PYRAZINAMIDE, ETHAMBUTOL) [Concomitant]

REACTIONS (7)
  - ACUTE MYOCARDIAL INFARCTION [None]
  - ANAPHYLACTIC REACTION [None]
  - CARDIAC ARREST [None]
  - HYPOTENSION [None]
  - INFUSION RELATED REACTION [None]
  - MUSCULAR WEAKNESS [None]
  - NO THERAPEUTIC RESPONSE [None]
